FAERS Safety Report 13500039 (Version 1)
Quarter: 2017Q2

REPORT INFORMATION
  Report Type: Spontaneous
  Country: SE (occurrence: SE)
  Receive Date: 20170501
  Receipt Date: 20170501
  Transmission Date: 20170830
  Serious: Yes (Hospitalization, Other)
  Sender: FDA-Public Use
  Company Number: SE-TEVA-762288ACC

PATIENT
  Age: 75 Year
  Sex: Female

DRUGS (11)
  1. FURIX RETARD [Concomitant]
     Active Substance: FUROSEMIDE
  2. OXYCONTIN [Concomitant]
     Active Substance: OXYCODONE HYDROCHLORIDE
  3. PULMICORT TURBUHALER [Concomitant]
     Active Substance: BUDESONIDE
  4. TROMBYL [Concomitant]
     Active Substance: ASPIRIN
  5. CANDESARTAN ORION [Concomitant]
     Active Substance: CANDESARTAN
  6. METFORMIN ACTAVIS [Suspect]
     Active Substance: METFORMIN HYDROCHLORIDE
     Indication: DIABETES MELLITUS
     Dosage: 1500 MG/DAG
     Route: 048
     Dates: start: 20070627, end: 20141121
  7. PERSANTIN [Concomitant]
     Active Substance: DIPYRIDAMOLE
  8. ACTOS [Concomitant]
     Active Substance: PIOGLITAZONE HYDROCHLORIDE
  9. OMEPRAZOL ACTAVIS [Concomitant]
     Active Substance: OMEPRAZOLE
  10. ALVEDON [Concomitant]
     Active Substance: ACETAMINOPHEN
  11. METOPROLOL ORION [Concomitant]
     Active Substance: METOPROLOL

REACTIONS (4)
  - Renal failure [Recovered/Resolved]
  - Acidosis [Recovered/Resolved]
  - Drug interaction [Recovered/Resolved]
  - Labelled drug-drug interaction medication error [Recovered/Resolved]

NARRATIVE: CASE EVENT DATE: 201411
